FAERS Safety Report 10645313 (Version 1)
Quarter: 2014Q4

REPORT INFORMATION
  Report Type: Spontaneous
  Country: SE (occurrence: SE)
  Receive Date: 20141211
  Receipt Date: 20141211
  Transmission Date: 20150529
  Serious: Yes (Hospitalization, Other)
  Sender: FDA-Public Use
  Company Number: PHHY2014SE155071

PATIENT
  Age: 41 Year
  Sex: Female

DRUGS (1)
  1. METHYLPHENIDATE [Suspect]
     Active Substance: METHYLPHENIDATE
     Indication: PRODUCT USED FOR UNKNOWN INDICATION
     Route: 042

REACTIONS (6)
  - Disseminated intravascular coagulation [Unknown]
  - Drug abuse [Unknown]
  - Renal failure [Unknown]
  - C-reactive protein increased [Unknown]
  - Incorrect route of drug administration [Unknown]
  - Haemolytic anaemia [Unknown]
